FAERS Safety Report 6664080-5 (Version None)
Quarter: 2010Q2

REPORT INFORMATION
  Report Type: 
  Country: None (occurrence: None)
  Receive Date: 20100401
  Receipt Date: 20100324
  Transmission Date: 20101027
  Serious: Yes (Hospitalization)
  Sender: FDA-Public Use
  Company Number: A0852726A

PATIENT
  Sex: Female

DRUGS (1)
  1. PROPAFENONE HCL [Suspect]
     Indication: EXTRASYSTOLES
     Dosage: 300MG TWICE PER DAY
     Route: 048

REACTIONS (3)
  - DRY MOUTH [None]
  - HYPOTENSION [None]
  - SOMNOLENCE [None]
